FAERS Safety Report 21204716 (Version 2)
Quarter: 2022Q3

REPORT INFORMATION
  Report Type: Spontaneous
  Country: US (occurrence: None)
  Receive Date: 20220812
  Receipt Date: 20220905
  Transmission Date: 20221026
  Serious: No
  Sender: FDA-Public Use
  Company Number: 2022A270336

PATIENT
  Age: 28593 Day
  Sex: Female
  Weight: 108.9 kg

DRUGS (1)
  1. FASENRA [Suspect]
     Active Substance: BENRALIZUMAB
     Indication: Asthma
     Route: 058
     Dates: start: 20220422

REACTIONS (6)
  - Wheezing [Recovered/Resolved]
  - Fatigue [Recovering/Resolving]
  - Memory impairment [Unknown]
  - Incorrect disposal of product [Unknown]
  - Incorrect dosage administered [Unknown]
  - Product storage error [Unknown]

NARRATIVE: CASE EVENT DATE: 20220404
